FAERS Safety Report 4434842-3 (Version None)
Quarter: 2004Q3

REPORT INFORMATION
  Report Type: 
  Country: None (occurrence: None)
  Receive Date: 20040726
  Receipt Date: 20040506
  Transmission Date: 20050211
  Serious: No
  Sender: FDA-Public Use
  Company Number: USA040566784

PATIENT
  Age: 65 Year
  Sex: Female
  Weight: 60 kg

DRUGS (5)
  1. FORTEO [Suspect]
     Indication: OSTEOPOROSIS
     Dosage: 20 UG/ 1 DAY
     Dates: start: 20040401
  2. CALCIUM WITH VITAMIN D [Concomitant]
  3. AVALIDE [Concomitant]
  4. VIOXX [Concomitant]
  5. FOSAMAX [Concomitant]

REACTIONS (3)
  - INFLUENZA [None]
  - MUSCLE CRAMP [None]
  - NOCTURIA [None]
